FAERS Safety Report 11229357 (Version 1)
Quarter: 2015Q2

REPORT INFORMATION
  Report Type: Spontaneous
  Country: FR (occurrence: FR)
  Receive Date: 20150630
  Receipt Date: 20150630
  Transmission Date: 20150821
  Serious: Yes (Death)
  Sender: FDA-Public Use
  Company Number: FR-ASTRAZENECA-2015SE62014

PATIENT
  Age: 24952 Day
  Sex: Female

DRUGS (1)
  1. INEXIUM [Suspect]
     Active Substance: ESOMEPRAZOLE
     Indication: HELICOBACTER INFECTION
     Route: 048
     Dates: start: 20150430, end: 20150519

REACTIONS (4)
  - Toxic epidermal necrolysis [Fatal]
  - Cardio-respiratory arrest [Fatal]
  - Multi-organ failure [Fatal]
  - Septic shock [Fatal]

NARRATIVE: CASE EVENT DATE: 20150519
